FAERS Safety Report 13728786 (Version 1)
Quarter: 2017Q3

REPORT INFORMATION
  Report Type: Spontaneous
  Country: IR (occurrence: IR)
  Receive Date: 20170707
  Receipt Date: 20170707
  Transmission Date: 20171127
  Serious: Yes (Death, Other)
  Sender: FDA-Public Use
  Company Number: IR-TEVA-785829ACC

PATIENT
  Age: 71 Year
  Sex: Male

DRUGS (3)
  1. RIBOMUSTIN [Suspect]
     Active Substance: BENDAMUSTINE HYDROCHLORIDE
     Indication: CHRONIC LYMPHOCYTIC LEUKAEMIA
     Dosage: (FIRST ACYCLE)
     Route: 042
  2. RIBOMUSTIN [Suspect]
     Active Substance: BENDAMUSTINE HYDROCHLORIDE
     Dosage: (SECOND ACYCLE)
     Route: 042
  3. RIBOMUSTIN [Suspect]
     Active Substance: BENDAMUSTINE HYDROCHLORIDE
     Dosage: (THIRD CYCLE)
     Route: 042

REACTIONS (3)
  - Lymphadenopathy [Unknown]
  - Blood creatinine decreased [Unknown]
  - Death [Fatal]
